FAERS Safety Report 9022600 (Version 1)
Quarter: 2013Q1

REPORT INFORMATION
  Report Type: Spontaneous
  Country: US (occurrence: US)
  Receive Date: 20130118
  Receipt Date: 20130118
  Transmission Date: 20140127
  Serious: No
  Sender: FDA-Public Use
  Company Number: US-GLAXOSMITHKLINE-A0997382A

PATIENT
  Age: 63 Year
  Sex: Male

DRUGS (1)
  1. PROMACTA [Suspect]
     Indication: HAEMOLYTIC URAEMIC SYNDROME
     Dosage: 75MG PER DAY
     Route: 048
     Dates: start: 20120625

REACTIONS (1)
  - Drug ineffective [Unknown]
